FAERS Safety Report 8424069-2 (Version None)
Quarter: 2012Q2

REPORT INFORMATION
  Report Type: 
  Country: None (occurrence: None)
  Receive Date: 20120608
  Receipt Date: 20110613
  Transmission Date: 20120825
  Serious: No
  Sender: FDA-Public Use
  Company Number: US-ASTRAZENECA-2011SE35977

PATIENT
  Sex: Male

DRUGS (2)
  1. CLARITHROMYCIN [Concomitant]
  2. PULMICORT FLEXHALER [Suspect]
     Indication: BRONCHITIS
     Route: 055
     Dates: start: 20110531

REACTIONS (2)
  - SNEEZING [None]
  - INCREASED UPPER AIRWAY SECRETION [None]
